FAERS Safety Report 5042821-0 (Version None)
Quarter: 2006Q2

REPORT INFORMATION
  Report Type: 
  Country: None (occurrence: None)
  Receive Date: 20060626
  Receipt Date: 20060612
  Transmission Date: 20061013
  Serious: Yes (Life-Threatening, Hospitalization)
  Sender: FDA-Public Use
  Company Number: 200610784BYL

PATIENT
  Age: 66 Year
  Sex: Female

DRUGS (14)
  1. AVELOX [Suspect]
     Indication: PNEUMONIA
     Dosage: 400 MG, QD, ORAL
     Route: 048
     Dates: start: 20060515, end: 20060517
  2. AVELOX [Suspect]
     Indication: PNEUMONIA
     Dosage: 400 MG, QD, ORAL
     Route: 048
     Dates: start: 20060601, end: 20060612
  3. RHEUMATREX [Suspect]
     Indication: RHEUMATOID ARTHRITIS
     Dosage: 4 MG, BID, ORAL
     Route: 048
     Dates: end: 20060515
  4. MEDROL COMP [Concomitant]
  5. DOGMATYL [Concomitant]
  6. GASLON N [Concomitant]
  7. BISOLVON [Concomitant]
  8. MUCODYNE [Concomitant]
  9. BENET [Concomitant]
  10. ULCERLMIN [Concomitant]
  11. CIPROXAN [Concomitant]
  12. UNASYN [Concomitant]
  13. DALACIN C [Concomitant]
  14. ERYTHROCIN [Concomitant]

REACTIONS (7)
  - ARTHRALGIA [None]
  - ASPERGILLOSIS [None]
  - DRUG INEFFECTIVE [None]
  - EOSINOPHILIC PNEUMONIA [None]
  - INTERSTITIAL LUNG DISEASE [None]
  - PNEUMONIA [None]
  - PNEUMONIA ASPIRATION [None]
